FAERS Safety Report 21119650 (Version 1)
Quarter: 2022Q3

REPORT INFORMATION
  Report Type: Spontaneous
  Country: US (occurrence: US)
  Receive Date: 20220722
  Receipt Date: 20220722
  Transmission Date: 20221027
  Serious: Yes (Hospitalization)
  Sender: FDA-Public Use
  Company Number: US-MYLANLABS-2022M1079155

PATIENT
  Age: 17 Year
  Sex: Male

DRUGS (22)
  1. BACLOFEN [Suspect]
     Active Substance: BACLOFEN
     Indication: Dystonia
     Dosage: 437.9 MICROGRAM, QD
     Route: 037
     Dates: start: 201606
  2. BACLOFEN [Suspect]
     Active Substance: BACLOFEN
     Dosage: 745.2 MICROGRAM, QD
     Route: 037
  3. BACLOFEN [Suspect]
     Active Substance: BACLOFEN
     Dosage: 819.72 MICROGRAM, QD
     Route: 037
     Dates: start: 201812
  4. BACLOFEN [Suspect]
     Active Substance: BACLOFEN
     Dosage: 1100 MICROGRAM, QD
     Route: 037
     Dates: start: 202001
  5. BACLOFEN [Suspect]
     Active Substance: BACLOFEN
     Dosage: 100 MICROGRAM, QD
     Route: 037
  6. BACLOFEN [Suspect]
     Active Substance: BACLOFEN
     Dosage: 275 MICROGRAM, QD
     Route: 037
     Dates: start: 202003
  7. BACLOFEN [Suspect]
     Active Substance: BACLOFEN
     Dosage: 375.4 MICROGRAM, QD
     Route: 037
     Dates: start: 202004
  8. BACLOFEN [Suspect]
     Active Substance: BACLOFEN
     Dosage: 230.2 MICROGRAM, QD
     Route: 037
  9. BACLOFEN [Suspect]
     Active Substance: BACLOFEN
     Dosage: 253.2 MICROGRAM, QD
     Route: 037
  10. BACLOFEN [Suspect]
     Active Substance: BACLOFEN
     Dosage: 278.1 MICROGRAM, QD
     Route: 037
  11. BACLOFEN [Suspect]
     Active Substance: BACLOFEN
     Dosage: UNK (DOSE DECREASED)
     Route: 037
  12. CARBIDOPA\LEVODOPA [Suspect]
     Active Substance: CARBIDOPA\LEVODOPA
     Indication: Dystonia
     Dosage: UNK
     Route: 065
  13. VALPROIC ACID [Suspect]
     Active Substance: VALPROIC ACID
     Indication: Bipolar disorder
     Dosage: 375 MILLIGRAM, BID
     Route: 065
  14. QUETIAPINE [Suspect]
     Active Substance: QUETIAPINE
     Indication: Bipolar disorder
     Dosage: UNK
     Route: 065
  15. LITHIUM [Suspect]
     Active Substance: LITHIUM
     Indication: Bipolar disorder
     Dosage: UNK
     Route: 065
  16. BOTULINUM TOXIN NOS [Concomitant]
     Active Substance: BOTULINUM TOXIN NOS
     Indication: Dystonia
     Dosage: UNK
     Route: 065
  17. LAMOTRIGINE [Concomitant]
     Active Substance: LAMOTRIGINE
     Indication: Bipolar disorder
     Dosage: 150 MILLIGRAM, BID
     Route: 065
  18. CARIPRAZINE [Concomitant]
     Active Substance: CARIPRAZINE
     Indication: Bipolar disorder
     Dosage: UNK
     Route: 065
     Dates: start: 202004
  19. DIAZEPAM [Concomitant]
     Active Substance: DIAZEPAM
     Indication: Bipolar disorder
     Dosage: 1 MILLIGRAM, BID
     Route: 065
  20. DIAZEPAM [Concomitant]
     Active Substance: DIAZEPAM
     Dosage: UNK
     Route: 065
  21. CITALOPRAM [Concomitant]
     Active Substance: CITALOPRAM HYDROBROMIDE
     Indication: Bipolar disorder
     Dosage: 10 MILLIGRAM, HS (EVERY NIGHT AT BEDTIME.)
     Route: 065
  22. VALPROIC ACID [Concomitant]
     Active Substance: VALPROIC ACID
     Indication: Bipolar disorder
     Dosage: UNK, EXTENDED RELEASE FORMULATION
     Route: 065

REACTIONS (4)
  - Behaviour disorder [Recovered/Resolved]
  - Tremor [Recovered/Resolved]
  - Depressed mood [Recovered/Resolved]
  - Adverse drug reaction [Unknown]
